FAERS Safety Report 14931543 (Version 2)
Quarter: 2018Q2

REPORT INFORMATION
  Report Type: Spontaneous
  Country: US (occurrence: US)
  Receive Date: 20180524
  Receipt Date: 20180530
  Transmission Date: 20180711
  Serious: Yes (Death)
  Sender: FDA-Public Use
  Company Number: US-ROCHE-2128999

PATIENT
  Age: 70 Year
  Sex: Female

DRUGS (14)
  1. ESBRIET [Suspect]
     Active Substance: PIRFENIDONE
     Indication: IDIOPATHIC PULMONARY FIBROSIS
     Dosage: 1 TAB FOR 1 WEEK
     Route: 048
     Dates: start: 20180427
  2. SPIRIVA [Concomitant]
     Active Substance: TIOTROPIUM BROMIDE MONOHYDRATE
  3. ATORVASTATIN CALCIUM. [Concomitant]
     Active Substance: ATORVASTATIN CALCIUM
  4. BUTRANS [Concomitant]
     Active Substance: BUPRENORPHINE
  5. LORAZEPAM. [Concomitant]
     Active Substance: LORAZEPAM
  6. GABAPENTIN. [Concomitant]
     Active Substance: GABAPENTIN
  7. DICLOFENAC SODIUM. [Concomitant]
     Active Substance: DICLOFENAC SODIUM
  8. METAXALONE. [Concomitant]
     Active Substance: METAXALONE
  9. BUPROPION HCL [Concomitant]
     Active Substance: BUPROPION HYDROCHLORIDE
  10. DILTIAZEM HCL [Concomitant]
     Active Substance: DILTIAZEM HYDROCHLORIDE
  11. ESBRIET [Suspect]
     Active Substance: PIRFENIDONE
     Dosage: 2 TAB 3 TIMES FOR 1 WEEK
     Route: 048
  12. HUMALOG [Concomitant]
     Active Substance: INSULIN LISPRO
  13. ESBRIET [Suspect]
     Active Substance: PIRFENIDONE
     Dosage: 3 TAB 3 TIMES
     Route: 048
  14. CITALOPRAM HYDROBROMIDE. [Concomitant]
     Active Substance: CITALOPRAM HYDROBROMIDE

REACTIONS (1)
  - Death [Fatal]

NARRATIVE: CASE EVENT DATE: 20180517
